FAERS Safety Report 20430196 (Version 1)
Quarter: 2022Q1

REPORT INFORMATION
  Report Type: Spontaneous
  Country: US (occurrence: None)
  Receive Date: 20220203
  Receipt Date: 20220203
  Transmission Date: 20220423
  Serious: No
  Sender: FDA-Public Use
  Company Number: None

PATIENT
  Age: 72 Year
  Sex: Male
  Weight: 87 kg

DRUGS (7)
  1. TEMOZOLOMIDE [Suspect]
     Active Substance: TEMOZOLOMIDE
     Indication: Brain neoplasm
     Dosage: OTHER FREQUENCY : QD FOR 5/28 DAYS;?
     Route: 048
     Dates: start: 20210927
  2. TEMOZOLOMIDE [Suspect]
     Active Substance: TEMOZOLOMIDE
     Indication: Brain neoplasm
     Dosage: OTHER FREQUENCY : QD FOR 5/28 DAYS;?
     Route: 048
     Dates: start: 20210927
  3. NIFEDIPINE EXTENDED-RELEASE [Concomitant]
     Active Substance: NIFEDIPINE
  4. KEPPRA [Concomitant]
     Active Substance: LEVETIRACETAM
  5. LOSARTAN [Concomitant]
     Active Substance: LOSARTAN
  6. VITAMINS [Concomitant]
     Active Substance: VITAMINS
  7. VITAMIN C [Concomitant]
     Active Substance: ASCORBIC ACID

REACTIONS (2)
  - Dizziness [None]
  - Confusional state [None]

NARRATIVE: CASE EVENT DATE: 20220203
